FAERS Safety Report 8958060 (Version 1)
Quarter: 2012Q4

REPORT INFORMATION
  Report Type: 
  Country: IT (occurrence: IT)
  Receive Date: 20121211
  Receipt Date: 20121211
  Transmission Date: 20130627
  Serious: Yes (Hospitalization, Other)
  Sender: FDA-Public Use
  Company Number: PHHY2012IT113140

PATIENT
  Age: 64 Year
  Sex: Male

DRUGS (6)
  1. LORAZEPAM [Suspect]
     Dosage: 50 mg in total
     Route: 048
     Dates: start: 20120807
  2. TALOFEN [Suspect]
     Dosage: 1200 mg in total
     Route: 048
     Dates: start: 20120807
  3. CARDIOASPIRIN [Concomitant]
     Dosage: 100 mg, UNK
  4. RIVOTRIL [Concomitant]
     Dosage: 2 mg, UNK
  5. WELLBUTRIN [Concomitant]
     Dosage: 30 mg, UNK
  6. TRIATEC [Concomitant]
     Dosage: 5 mg, UNK

REACTIONS (6)
  - Suicide attempt [Unknown]
  - Speech disorder [Recovering/Resolving]
  - Bradyphrenia [Recovering/Resolving]
  - Hypokinesia [Recovering/Resolving]
  - Somnolence [Recovering/Resolving]
  - Drug abuse [Unknown]
